FAERS Safety Report 19448718 (Version 6)
Quarter: 2022Q3

REPORT INFORMATION
  Report Type: Other
  Country: LB (occurrence: None)
  Receive Date: 20210622
  Receipt Date: 20220803
  Transmission Date: 20221027
  Serious: Yes (Hospitalization)
  Sender: FDA-Public Use
  Company Number: LB-ROCHE-2851593

PATIENT
  Sex: Male

DRUGS (1)
  1. TECENTRIQ [Suspect]
     Active Substance: ATEZOLIZUMAB
     Indication: Small cell lung cancer
     Route: 041
     Dates: start: 20210506, end: 20220114

REACTIONS (14)
  - Pyrexia [Recovered/Resolved]
  - Bronchitis [Recovering/Resolving]
  - Gait disturbance [Unknown]
  - Chest pain [Not Recovered/Not Resolved]
  - Neoplasm progression [Unknown]
  - Inappropriate schedule of product administration [Unknown]
  - General physical health deterioration [Recovering/Resolving]
  - Pleural effusion [Recovering/Resolving]
  - Pulmonary embolism [Recovering/Resolving]
  - Pulmonary fibrosis [Recovering/Resolving]
  - Gait inability [Unknown]
  - Hypoxia [Unknown]
  - Iron deficiency [Unknown]
  - Haemoglobin decreased [Unknown]

NARRATIVE: CASE EVENT DATE: 20210611
